FAERS Safety Report 18620464 (Version 1)
Quarter: 2020Q4

REPORT INFORMATION
  Report Type: Spontaneous
  Country: US (occurrence: US)
  Receive Date: 20201215
  Receipt Date: 20201215
  Transmission Date: 20210114
  Serious: Yes (Life-Threatening, Hospitalization)
  Sender: FDA-Public Use
  Company Number: US-TEVA-2020-US-1858111

PATIENT
  Age: 9 Month
  Sex: Female

DRUGS (11)
  1. CISATRACURIUM. [Concomitant]
     Active Substance: CISATRACURIUM
     Indication: MUSCLE RELAXANT THERAPY
     Route: 041
  2. DEXMEDETOMIDINE. [Interacting]
     Active Substance: DEXMEDETOMIDINE
     Dosage: 24 UG/KG DAILY;
     Route: 041
  3. FENTANYL. [Suspect]
     Active Substance: FENTANYL
     Indication: ANAESTHESIA
     Dosage: 24 UG/KG DAILY;
     Route: 041
  4. DEXMEDETOMIDINE. [Suspect]
     Active Substance: DEXMEDETOMIDINE
     Indication: SEDATIVE THERAPY
     Route: 040
  5. CISATRACURIUM. [Concomitant]
     Active Substance: CISATRACURIUM
     Route: 041
  6. FENTANYL. [Suspect]
     Active Substance: FENTANYL
     Route: 040
  7. MIDAZOLAM. [Concomitant]
     Active Substance: MIDAZOLAM
     Indication: ANAESTHESIA
     Route: 040
  8. FENTANYL. [Suspect]
     Active Substance: FENTANYL
     Dosage: 72 UG/KG DAILY;
     Route: 041
  9. CISATRACURIUM. [Concomitant]
     Active Substance: CISATRACURIUM
     Route: 041
  10. FENTANYL. [Suspect]
     Active Substance: FENTANYL
     Dosage: 48 UG/KG DAILY;
     Route: 041
  11. TACROLIMUS. [Interacting]
     Active Substance: TACROLIMUS
     Indication: IMMUNOSUPPRESSANT DRUG THERAPY
     Route: 065

REACTIONS (3)
  - Drug interaction [Recovered/Resolved]
  - Sinus bradycardia [Recovered/Resolved]
  - Sinus arrest [Recovered/Resolved]
